FAERS Safety Report 8541796-7 (Version None)
Quarter: 2012Q3

REPORT INFORMATION
  Report Type: 
  Country: None (occurrence: None)
  Receive Date: 20120726
  Receipt Date: 20110908
  Transmission Date: 20120928
  Serious: No
  Sender: FDA-Public Use
  Company Number: US-ASTRAZENECA-2011SE53488

PATIENT
  Sex: Female

DRUGS (6)
  1. SEROQUEL [Suspect]
     Route: 048
     Dates: start: 20071211
  2. DEPAKOTE [Concomitant]
  3. ZYPREXA [Concomitant]
  4. LITHIUM CARBONATE [Concomitant]
  5. TRILEPTAL [Concomitant]
  6. SEROQUEL [Suspect]
     Indication: BIPOLAR I DISORDER
     Route: 048
     Dates: start: 20030101

REACTIONS (1)
  - ADVERSE DRUG REACTION [None]
